FAERS Safety Report 8027905-7 (Version None)
Quarter: 2012Q1

REPORT INFORMATION
  Report Type: 
  Country: None (occurrence: None)
  Receive Date: 20120104
  Receipt Date: 20111219
  Transmission Date: 20120608
  Serious: Yes (Other)
  Sender: FDA-Public Use
  Company Number: DSI-2011-19358

PATIENT
  Age: 6 Decade
  Sex: Male

DRUGS (5)
  1. SIMVASTATIN [Concomitant]
  2. MEDICINE FOR HYPERGLYCAEMIA (NAME UNKNOWN) [Concomitant]
  3. BENICAR HCT [Suspect]
     Indication: HYPERTENSION
     Dosage: 40/25 MG (1 IN 1 D), PER ORAL
     Route: 048
     Dates: start: 20110101
  4. BENICAR HCT [Suspect]
     Indication: HYPERTENSION
     Dosage: 40/25 MG (1 IN 1 D), PER ORAL
     Route: 048
     Dates: start: 20060101, end: 20110101
  5. CILOSTAZOL [Suspect]
     Indication: PAIN IN EXTREMITY
     Dosage: 200 MG, PER ORAL, 100 MG, PER ORAL
     Route: 048
     Dates: start: 20070101

REACTIONS (5)
  - BLOOD PRESSURE FLUCTUATION [None]
  - TACHYCARDIA [None]
  - HYPOTENSION [None]
  - HYPERGLYCAEMIA [None]
  - PAIN IN EXTREMITY [None]
